FAERS Safety Report 8928006 (Version 1)
Quarter: 2012Q4

REPORT INFORMATION
  Report Type: Spontaneous
  Country: US (occurrence: None)
  Receive Date: 20121121
  Receipt Date: 20121121
  Transmission Date: 20130627
  Serious: Yes (Hospitalization)
  Sender: FDA-Public Use
  Company Number: None

PATIENT
  Age: 66 Year
  Sex: Female
  Weight: 85.73 kg

DRUGS (1)
  1. VENOFER [Suspect]
     Indication: MACROCYTIC ANEMIA
     Dates: start: 20120809, end: 20120814

REACTIONS (3)
  - Fatigue [None]
  - Chest discomfort [None]
  - Dyspnoea [None]
